FAERS Safety Report 7018081-8 (Version None)
Quarter: 2010Q3

REPORT INFORMATION
  Report Type: 
  Country: None (occurrence: None)
  Receive Date: 20100927
  Receipt Date: 20100927
  Transmission Date: 20110219
  Serious: No
  Sender: FDA-Public Use
  Company Number: None

PATIENT
  Age: 54 Year
  Sex: Female
  Weight: 89.3586 kg

DRUGS (1)
  1. AVANDAMET [Suspect]

REACTIONS (2)
  - ABDOMINAL DISCOMFORT [None]
  - CHEST PAIN [None]
